FAERS Safety Report 15575997 (Version 1)
Quarter: 2018Q4

REPORT INFORMATION
  Report Type: Report from Study
  Country: AR (occurrence: AR)
  Receive Date: 20181101
  Receipt Date: 20181101
  Transmission Date: 20190205
  Serious: Yes (Hospitalization)
  Sender: FDA-Public Use
  Company Number: PHHY2018AR143041

PATIENT
  Age: 78 Year
  Sex: Male

DRUGS (1)
  1. ENTRESTO [Suspect]
     Active Substance: SACUBITRIL\VALSARTAN
     Indication: CARDIAC FAILURE
     Dosage: 0.5 DF (49 MG SACUBITRIL AND 51 MG VALSARTAN), Q12H
     Route: 065

REACTIONS (5)
  - Product prescribing error [Not Recovered/Not Resolved]
  - Blood pressure decreased [Not Recovered/Not Resolved]
  - Loss of consciousness [Not Recovered/Not Resolved]
  - Malaise [Not Recovered/Not Resolved]
  - Wrong technique in product usage process [Not Recovered/Not Resolved]

NARRATIVE: CASE EVENT DATE: 201809
